FAERS Safety Report 7268221-0 (Version None)
Quarter: 2011Q1

REPORT INFORMATION
  Report Type: 
  Country: None (occurrence: None)
  Receive Date: 20110201
  Receipt Date: 20110124
  Transmission Date: 20110831
  Serious: Yes (Hospitalization, Other)
  Sender: FDA-Public Use
  Company Number: PHEH2010US00537

PATIENT
  Sex: Female

DRUGS (1)
  1. EXJADE [Suspect]
     Dosage: 500 MG/DAY
     Route: 048
     Dates: start: 20080616, end: 20080715

REACTIONS (2)
  - CONVULSION [None]
  - HAEMORRHAGE INTRACRANIAL [None]
